FAERS Safety Report 12738894 (Version 2)
Quarter: 2016Q4

REPORT INFORMATION
  Report Type: Spontaneous
  Country: US (occurrence: US)
  Receive Date: 20160912
  Receipt Date: 20161229
  Transmission Date: 20170207
  Serious: No
  Sender: FDA-Public Use
  Company Number: US-PFIZER INC-2016420885

PATIENT
  Age: 58 Year
  Sex: Female
  Weight: 90.72 kg

DRUGS (10)
  1. LEVOCETIRIZINE [Concomitant]
     Active Substance: LEVOCETIRIZINE
     Indication: HYPERSENSITIVITY
     Dosage: 5 MG, 1X/DAY, AT NIGHT
     Route: 048
     Dates: start: 201403
  2. MELATONIN [Concomitant]
     Active Substance: MELATONIN
     Indication: INSOMNIA
     Dosage: 30 MG, DAILY, 10MG, 3 AT NIGHT
     Dates: start: 201203
  3. LYRICA [Concomitant]
     Active Substance: PREGABALIN
     Indication: FIBROMYALGIA
     Dosage: 225 MG, 2X/DAY
     Dates: start: 201306
  4. CELEBREX [Suspect]
     Active Substance: CELECOXIB
     Indication: ARTHRITIS
     Dosage: 200 MG, 2X/DAY
     Dates: start: 201606
  5. MORPHINE SULFATE ER [Concomitant]
     Active Substance: MORPHINE SULFATE
     Indication: PAIN
     Dosage: 15 MG, 3X/DAY, ONE EVERY 8 HOUR (3 A DAY) FOR 30 DAYS
     Dates: start: 201606
  6. MONTELUKAST SODIUM. [Concomitant]
     Active Substance: MONTELUKAST SODIUM
     Indication: HYPERSENSITIVITY
     Dosage: 10 MG, 1X/DAY, IN THE MORING
     Route: 048
     Dates: start: 201403
  7. ROPINIROLE HCL [Concomitant]
     Active Substance: ROPINIROLE HYDROCHLORIDE
     Indication: RESTLESS LEGS SYNDROME
     Dosage: 1 MG, DAILY, ONE AT NIGHT
     Dates: start: 201402
  8. NEXIUM 24HR [Concomitant]
     Active Substance: ESOMEPRAZOLE MAGNESIUM
     Indication: GASTROOESOPHAGEAL REFLUX DISEASE
     Dosage: UNK UNK, 1X/DAY
     Dates: start: 201206
  9. CELEBREX [Suspect]
     Active Substance: CELECOXIB
     Dosage: 200 MG, 1X/DAY
     Route: 048
  10. MELATONIN [Concomitant]
     Active Substance: MELATONIN
     Dosage: UP TO 6

REACTIONS (3)
  - Gait disturbance [Recovered/Resolved]
  - Movement disorder [Recovered/Resolved]
  - Pain [Recovered/Resolved]
